FAERS Safety Report 18363556 (Version 2)
Quarter: 2021Q1

REPORT INFORMATION
  Report Type: Spontaneous
  Country: US (occurrence: US)
  Receive Date: 20201008
  Receipt Date: 20210218
  Transmission Date: 20210419
  Serious: No
  Sender: FDA-Public Use
  Company Number: US-INCYTE CORPORATION-2020IN009201

PATIENT

DRUGS (2)
  1. JAKAFI [Suspect]
     Active Substance: RUXOLITINIB
     Indication: IMMUNODEFICIENCY
     Dosage: 10 MILLIGRAM, BID
     Route: 048
     Dates: start: 202007
  2. JAKAFI [Suspect]
     Active Substance: RUXOLITINIB
     Indication: BONE MARROW TRANSPLANT
     Dosage: 10 MILLIGRAM, BID (5 MG TABLET)
     Route: 048
     Dates: start: 20200724

REACTIONS (3)
  - Off label use [Unknown]
  - Confusional state [Unknown]
  - Dysarthria [Unknown]

NARRATIVE: CASE EVENT DATE: 202007
